FAERS Safety Report 4313754-X (Version None)
Quarter: 2004Q1

REPORT INFORMATION
  Report Type: 
  Country: None (occurrence: None)
  Receive Date: 20040305
  Receipt Date: 20040226
  Transmission Date: 20041129
  Serious: Yes (Life-Threatening)
  Sender: FDA-Public Use
  Company Number: 200401336

PATIENT
  Age: 8 Year
  Sex: Male
  Weight: 26.3086 kg

DRUGS (3)
  1. BOTOX [Suspect]
     Indication: MUSCLE SPASTICITY
     Dates: start: 20040217
  2. ALBUTEROL [Concomitant]
  3. LACTULOSE [Concomitant]

REACTIONS (6)
  - ANOXIA [None]
  - APNOEA [None]
  - COMA [None]
  - CYANOSIS [None]
  - PYREXIA [None]
  - RESPIRATORY ARREST [None]
